FAERS Safety Report 6754300-0 (Version None)
Quarter: 2010Q2

REPORT INFORMATION
  Report Type: 
  Country: None (occurrence: None)
  Receive Date: 20100603
  Receipt Date: 20100527
  Transmission Date: 20101027
  Serious: Yes (Death, Hospitalization, Other)
  Sender: FDA-Public Use
  Company Number: ES-CELGENEUS-144-50794-10052592

PATIENT
  Age: 80 Year
  Sex: Female

DRUGS (2)
  1. VIDAZA [Suspect]
     Route: 050
     Dates: start: 20071101, end: 20090725
  2. DARBEPOETIN [Concomitant]
     Route: 065
     Dates: start: 20061101

REACTIONS (1)
  - DEATH [None]
